FAERS Safety Report 5443130-8 (Version None)
Quarter: 2007Q3

REPORT INFORMATION
  Report Type: 
  Country: None (occurrence: None)
  Receive Date: 20070830
  Receipt Date: 20070822
  Transmission Date: 20080115
  Serious: Yes (Hospitalization)
  Sender: FDA-Public Use
  Company Number: 2007BI014463

PATIENT
  Sex: Female

DRUGS (1)
  1. AVONEX [Suspect]
     Dosage: IM
     Route: 030
     Dates: start: 20030125

REACTIONS (10)
  - ARTHRALGIA [None]
  - HEADACHE [None]
  - HYPERHIDROSIS [None]
  - HYPERTENSION [None]
  - INFLUENZA LIKE ILLNESS [None]
  - MUSCULOSKELETAL STIFFNESS [None]
  - MYALGIA [None]
  - NEPHROLITHIASIS [None]
  - OSTEOARTHRITIS [None]
  - URINARY TRACT INFECTION [None]
